FAERS Safety Report 5375460-2 (Version None)
Quarter: 2007Q2

REPORT INFORMATION
  Report Type: 
  Country: None (occurrence: None)
  Receive Date: 20070629
  Receipt Date: 20070622
  Transmission Date: 20071010
  Serious: Yes (Hospitalization, Other)
  Sender: FDA-Public Use
  Company Number: GR-PFIZER INC-2007042042

PATIENT
  Sex: Male

DRUGS (10)
  1. LYRICA [Suspect]
     Indication: NEURALGIA
     Route: 048
  2. LYRICA [Suspect]
     Dosage: TEXT:75 MG 1X2 DAILY TDD:150 MG
     Route: 048
  3. PENSORDIL [Concomitant]
     Route: 048
  4. TREBON N [Concomitant]
     Route: 048
  5. SERETIDE DISKUS [Concomitant]
     Route: 055
  6. BESIX [Concomitant]
     Route: 048
  7. EVION [Concomitant]
     Route: 048
  8. CELEBREX [Concomitant]
     Route: 048
  9. DURAGESIC-100 [Concomitant]
     Route: 062
  10. PARIET [Concomitant]
     Route: 048

REACTIONS (3)
  - FATIGUE [None]
  - TREMOR [None]
  - WALKING DISABILITY [None]
